FAERS Safety Report 4998763-X (Version None)
Quarter: 2006Q2

REPORT INFORMATION
  Report Type: 
  Country: None (occurrence: None)
  Receive Date: 20060509
  Receipt Date: 20060428
  Transmission Date: 20061013
  Serious: Yes (Hospitalization, Other)
  Sender: FDA-Public Use
  Company Number: 2006057113

PATIENT
  Age: 46 Year
  Sex: Male

DRUGS (8)
  1. XANAX [Suspect]
     Indication: ILL-DEFINED DISORDER
     Dosage: ORAL
     Route: 048
  2. ALCOHOL (ETHANOL) [Suspect]
     Indication: ILL-DEFINED DISORDER
  3. PEG-INTRON [Suspect]
     Indication: HEPATITIS C
     Dosage: SUBCUTANEOUS
     Route: 058
     Dates: start: 20060217
  4. RIBAVIRN (RIBAVIRIN) [Suspect]
     Indication: HEPATITIS C
     Dosage: ORAL
     Route: 048
     Dates: start: 20060217
  5. FLORINEF [Concomitant]
  6. LACTULOSE [Concomitant]
  7. NEXIUM [Concomitant]
  8. TENORMIN [Concomitant]

REACTIONS (7)
  - INTENTIONAL OVERDOSE [None]
  - IRRITABILITY [None]
  - LOSS OF CONSCIOUSNESS [None]
  - PARTNER STRESS [None]
  - SUICIDE ATTEMPT [None]
  - VERBAL ABUSE [None]
  - WHITE BLOOD CELL COUNT DECREASED [None]
